FAERS Safety Report 23537436 (Version 1)
Quarter: 2024Q1

REPORT INFORMATION
  Report Type: Report from Study
  Country: US (occurrence: US)
  Receive Date: 20240219
  Receipt Date: 20240219
  Transmission Date: 20240410
  Serious: Yes (Other)
  Sender: FDA-Public Use
  Company Number: US-ABBVIE-5639319

PATIENT
  Sex: Male

DRUGS (1)
  1. SKYRIZI [Suspect]
     Active Substance: RISANKIZUMAB-RZAA
     Indication: Psoriasis
     Route: 058
     Dates: start: 20230317

REACTIONS (9)
  - Medical device implantation [Unknown]
  - Back pain [Unknown]
  - Memory impairment [Unknown]
  - Complication associated with device [Unknown]
  - Medical device site pain [Unknown]
  - Spinal disorder [Unknown]
  - Adhesion [Unknown]
  - Pain in extremity [Unknown]
  - Neuritis [Unknown]
